FAERS Safety Report 6469083-1 (Version None)
Quarter: 2009Q4

REPORT INFORMATION
  Report Type: 
  Country: None (occurrence: None)
  Receive Date: 20091203
  Receipt Date: 20070928
  Transmission Date: 20100525
  Serious: No
  Sender: FDA-Public Use
  Company Number: FR-ELI_LILLY_AND_COMPANY-FR200709000556

PATIENT
  Age: 31 Year
  Sex: Male

DRUGS (2)
  1. ZYPREXA [Suspect]
     Indication: SCHIZOPHRENIA
     Dosage: 20 MG, DAILY (1/D)
     Route: 048
     Dates: start: 20070301, end: 20070701
  2. ZYPREXA [Suspect]
     Dosage: 30 MG, DAILY (1/D)
     Route: 048
     Dates: start: 20070701

REACTIONS (3)
  - LOW DENSITY LIPOPROTEIN INCREASED [None]
  - OVERDOSE [None]
  - PLATELET COUNT ABNORMAL [None]
